FAERS Safety Report 5701811-2 (Version None)
Quarter: 2008Q2

REPORT INFORMATION
  Report Type: 
  Country: None (occurrence: None)
  Receive Date: 20080410
  Receipt Date: 20080410
  Transmission Date: 20081010
  Serious: Yes (Life-Threatening, Disabling)
  Sender: FDA-Public Use
  Company Number: None

PATIENT
  Sex: Female
  Weight: 67.1324 kg

DRUGS (2)
  1. ZESTORETIC [Suspect]
     Indication: HYPERTENSION
     Dosage: 20.12.5 1 A DAY
     Dates: start: 20020101, end: 20051101
  2. BACTRIM [Suspect]
     Indication: INFECTION
     Dosage: 1 A DAY
     Dates: start: 20050801

REACTIONS (11)
  - CEREBROVASCULAR ACCIDENT [None]
  - DRUG HYPERSENSITIVITY [None]
  - HEADACHE [None]
  - HEART RATE IRREGULAR [None]
  - PARAESTHESIA [None]
  - ROAD TRAFFIC ACCIDENT [None]
  - SKIN DISCOLOURATION [None]
  - SPINAL CORD HAEMORRHAGE [None]
  - TINNITUS [None]
  - TRANSIENT ISCHAEMIC ATTACK [None]
  - TYMPANIC MEMBRANE PERFORATION [None]
